FAERS Safety Report 10254548 (Version 2)
Quarter: 2014Q2

REPORT INFORMATION
  Report Type: Report from Study
  Country: DE (occurrence: DE)
  Receive Date: 20140624
  Receipt Date: 20140626
  Transmission Date: 20141212
  Serious: No
  Sender: FDA-Public Use
  Company Number: DE-ROCHE-1422543

PATIENT
  Sex: Female
  Weight: 72.1 kg

DRUGS (9)
  1. RANIBIZUMAB [Suspect]
     Indication: AGE-RELATED MACULAR DEGENERATION
     Route: 050
     Dates: start: 20130101
  2. RANIBIZUMAB [Suspect]
     Route: 050
     Dates: start: 20140130
  3. RANIBIZUMAB [Suspect]
     Route: 050
     Dates: start: 20140326
  4. RANIBIZUMAB [Suspect]
     Route: 050
     Dates: start: 20140515
  5. EPROSARTAN [Concomitant]
  6. PANTOPRAZOLE SODIUM SESQUIHYDRATE [Concomitant]
  7. SIMVAHEXAL [Concomitant]
  8. SPIRIVA [Concomitant]
  9. TORASEMID [Concomitant]

REACTIONS (1)
  - Conductive deafness [Not Recovered/Not Resolved]
